FAERS Safety Report 23735657 (Version 1)
Quarter: 2024Q2

REPORT INFORMATION
  Report Type: Spontaneous
  Country: CA (occurrence: None)
  Receive Date: 20240412
  Receipt Date: 20240412
  Transmission Date: 20240715
  Serious: Yes (Other)
  Sender: FDA-Public Use
  Company Number: 2024A085929

PATIENT
  Age: 62 Year
  Sex: Male

DRUGS (12)
  1. ROSUVASTATIN [Suspect]
     Active Substance: ROSUVASTATIN
     Route: 058
  2. CANDESARTAN [Suspect]
     Active Substance: CANDESARTAN
  3. AMLODIPINE [Suspect]
     Active Substance: AMLODIPINE BESYLATE
  4. AMOXICILLIN AND CLAVULANATE POTASSIUM [Suspect]
     Active Substance: AMOXICILLIN\CLAVULANATE POTASSIUM
  5. CIPROFLOXACIN [Suspect]
     Active Substance: CIPROFLOXACIN
  6. FLUTICASONE PROPIONATE\SALMETEROL XINAFOATE [Suspect]
     Active Substance: FLUTICASONE PROPIONATE\SALMETEROL XINAFOATE
  7. HYDROMORPHONE [Suspect]
     Active Substance: HYDROMORPHONE
  8. OLANZAPINE [Suspect]
     Active Substance: OLANZAPINE
  9. PANTOPRAZOLE [Suspect]
     Active Substance: PANTOPRAZOLE
  10. ALBUTEROL SULFATE [Suspect]
     Active Substance: ALBUTEROL SULFATE
  11. SENNOSIDES [Suspect]
     Active Substance: SENNOSIDES
  12. PREDNISONE [Suspect]
     Active Substance: PREDNISONE

REACTIONS (1)
  - Febrile neutropenia [Unknown]
